FAERS Safety Report 20412442 (Version 1)
Quarter: 2022Q1

REPORT INFORMATION
  Report Type: Spontaneous
  Country: US (occurrence: US)
  Receive Date: 20220201
  Receipt Date: 20220201
  Transmission Date: 20220424
  Serious: No
  Sender: FDA-Public Use
  Company Number: US-AZURITY PHARMACEUTICALS, INC.-2021AZY00124

PATIENT
  Sex: Female

DRUGS (6)
  1. FIRVANQ [Suspect]
     Active Substance: VANCOMYCIN HYDROCHLORIDE
     Indication: Clostridium difficile infection
     Dosage: 9 ML (^500^ MG) VIA IV PUSH ONE TIME
     Route: 042
     Dates: start: 20211109, end: 20211109
  2. FERROUS SULFATE [Concomitant]
     Active Substance: FERROUS SULFATE
  3. PROBIOTICS NOS [Concomitant]
     Active Substance: PROBIOTICS NOS
  4. CELECOXIB [Concomitant]
     Active Substance: CELECOXIB
  5. DOCUSATE [Concomitant]
     Active Substance: DOCUSATE
  6. VITAMINS [Concomitant]
     Active Substance: VITAMINS

REACTIONS (5)
  - Tachycardia [Recovered/Resolved]
  - Injection site hypoaesthesia [Recovered/Resolved]
  - Injection site paraesthesia [Recovered/Resolved]
  - Taste disorder [Recovered/Resolved]
  - Incorrect route of product administration [Recovered/Resolved]

NARRATIVE: CASE EVENT DATE: 20211109
